FAERS Safety Report 8557438-0 (Version None)
Quarter: 2012Q3

REPORT INFORMATION
  Report Type: 
  Country: None (occurrence: None)
  Receive Date: 20120801
  Receipt Date: 20120719
  Transmission Date: 20120928
  Serious: Yes (Other)
  Sender: FDA-Public Use
  Company Number: US-ELI_LILLY_AND_COMPANY-US201205000155

PATIENT
  Sex: Female
  Weight: 139.68 kg

DRUGS (10)
  1. AMITRIPTLINE HYDROCHLORIDE TAB [Concomitant]
     Dosage: UNK
     Dates: start: 20120401
  2. BUSPAR [Concomitant]
     Dosage: UNK
     Dates: start: 20120401
  3. LISINOPRIL [Concomitant]
     Dosage: UNK
     Dates: start: 20120401
  4. METOLAZONE [Concomitant]
     Dosage: UNK
  5. HUMULIN N [Suspect]
     Dosage: 80 U, AT LUNCH
     Dates: start: 20110101
  6. HUMULIN N [Suspect]
     Dosage: 90 U, TID
  7. ISOSORBIDE [Concomitant]
     Dosage: UNK
     Dates: start: 20120401
  8. METOPROLOL TARTRATE [Concomitant]
     Dosage: UNK
     Dates: start: 20120301
  9. HUMULIN N [Suspect]
     Indication: TYPE 2 DIABETES MELLITUS
     Dosage: 80 U, EACH MORNING
     Dates: start: 20111102
  10. HUMULIN N [Suspect]
     Dosage: 65 U, AT NIGHT
     Dates: start: 20110101

REACTIONS (8)
  - OEDEMA PERIPHERAL [None]
  - INCREASED APPETITE [None]
  - DYSPNOEA [None]
  - BLOOD GLUCOSE INCREASED [None]
  - WEIGHT INCREASED [None]
  - PRURITUS [None]
  - PERIARTHRITIS [None]
  - MUSCULOSKELETAL DISORDER [None]
